FAERS Safety Report 21342900 (Version 1)
Quarter: 2022Q3

REPORT INFORMATION
  Report Type: Report from Study
  Country: US (occurrence: US)
  Receive Date: 20220916
  Receipt Date: 20220916
  Transmission Date: 20221027
  Serious: Yes (Hospitalization, Other)
  Sender: FDA-Public Use
  Company Number: US-MYLANLABS-2022M1087805

PATIENT
  Sex: Male
  Weight: 86.8 kg

DRUGS (6)
  1. LEUCOVORIN CALCIUM [Suspect]
     Active Substance: LEUCOVORIN CALCIUM
     Indication: Pancreatic carcinoma metastatic
     Dosage: 400 MILLIGRAM/SQ. METER (ON DAY 1 EVERY 14 DAYS)
     Route: 042
  2. LEUCOVORIN CALCIUM [Suspect]
     Active Substance: LEUCOVORIN CALCIUM
     Dosage: 825 MILLIGRAM EVERY 14 DAYS
     Route: 042
     Dates: start: 20170330, end: 20170524
  3. ADRUCIL [Suspect]
     Active Substance: FLUOROURACIL
     Indication: Pancreatic carcinoma metastatic
     Dosage: 400 MILLIGRAM/SQ. METER (BOLUS; ON DAY 1 EVERY 14 DAYS)
     Route: 065
  4. ADRUCIL [Suspect]
     Active Substance: FLUOROURACIL
     Dosage: 2400 MILLIGRAM/SQ. METER (CONTINUOUS INFUSION OVER 46 HOURS; ON DAY 1 EVERY 14 DAYS)
     Route: 065
  5. ELOXATIN [Suspect]
     Active Substance: OXALIPLATIN
     Indication: Pancreatic carcinoma metastatic
     Dosage: 85 MILLIGRAM/SQ. METER (ON DAY 1 EVERY 14 DAYS)
     Route: 042
     Dates: start: 20170330, end: 20170524
  6. SPRYCEL [Suspect]
     Active Substance: DASATINIB
     Indication: Pancreatic carcinoma metastatic
     Dosage: 150 MILLIGRAM, QD(FLAT DOSE ON DAYS 1-14)
     Route: 048
     Dates: start: 20170330, end: 20170524

REACTIONS (1)
  - Sepsis [Recovered/Resolved]

NARRATIVE: CASE EVENT DATE: 20170424
